FAERS Safety Report 9085609 (Version 1)
Quarter: 2013Q1

REPORT INFORMATION
  Report Type: Spontaneous
  Country: US (occurrence: US)
  Receive Date: 20130131
  Receipt Date: 20130131
  Transmission Date: 20140127
  Serious: Yes (Other)
  Sender: FDA-Public Use
  Company Number: US-PURDUE-USA-2013-0097970

PATIENT
  Sex: Female

DRUGS (1)
  1. ZOLPIDEM TARTRATE [Suspect]
     Indication: ACCIDENTAL EXPOSURE TO PRODUCT
     Dosage: UNK
     Route: 048
     Dates: start: 20121030

REACTIONS (5)
  - Accidental exposure to product [Unknown]
  - Victim of sexual abuse [Unknown]
  - Alcohol use [Unknown]
  - Loss of consciousness [Unknown]
  - Feeling abnormal [Unknown]
